FAERS Safety Report 19786860 (Version 1)
Quarter: 2021Q3

REPORT INFORMATION
  Report Type: Spontaneous
  Country: GB (occurrence: GB)
  Receive Date: 20210903
  Receipt Date: 20210903
  Transmission Date: 20211014
  Serious: Yes (Other)
  Sender: FDA-Public Use
  Company Number: GB-TEVA-2021-GB-1947314

PATIENT
  Age: 78 Year
  Sex: Male
  Weight: 117.02 kg

DRUGS (7)
  1. AMLODIPINE BESILATE [Concomitant]
     Active Substance: AMLODIPINE BESYLATE
  2. METFORMIN HYDROCHLORIDE. [Concomitant]
     Active Substance: METFORMIN HYDROCHLORIDE
  3. FUROSEMIDE SODIUM [Concomitant]
     Active Substance: FUROSEMIDE SODIUM
  4. DOXAZOSIN [Suspect]
     Active Substance: DOXAZOSIN MESYLATE
     Indication: HYPERTENSION
     Dosage: 2 MG
     Route: 048
     Dates: end: 20210728
  5. CRESCENT PHARMA ATENOLOL [Concomitant]
  6. GENERICS UK GLICLAZIDE [Concomitant]
     Active Substance: GLICLAZIDE
  7. IRBESARTAN HYDROCHLORIDE [Concomitant]
     Active Substance: IRBESARTAN

REACTIONS (7)
  - Fluid retention [Recovering/Resolving]
  - Weight increased [Recovering/Resolving]
  - Drug ineffective [Unknown]
  - Abdominal distension [Recovering/Resolving]
  - Joint swelling [Recovering/Resolving]
  - Blood pressure increased [Recovering/Resolving]
  - Peripheral swelling [Recovering/Resolving]

NARRATIVE: CASE EVENT DATE: 20210716
